APPROVED DRUG PRODUCT: ERYTHROMYCIN
Active Ingredient: ERYTHROMYCIN
Strength: 0.5%
Dosage Form/Route: OINTMENT;OPHTHALMIC
Application: A064067 | Product #001 | TE Code: AT
Applicant: BAUSCH AND LOMB PHARMACEUTICALS INC
Approved: Jul 29, 1994 | RLD: No | RS: Yes | Type: RX